FAERS Safety Report 12541281 (Version 1)
Quarter: 2016Q3

REPORT INFORMATION
  Report Type: Spontaneous
  Country: US (occurrence: US)
  Receive Date: 20160708
  Receipt Date: 20160708
  Transmission Date: 20161109
  Serious: Yes (Other)
  Sender: FDA-Public Use
  Company Number: US-BAYER-2016-129095

PATIENT
  Age: 46 Year
  Sex: Female
  Weight: 68 kg

DRUGS (6)
  1. ONE A DAY WOMEN^S 50+ HEALTHY ADVANTAGE [Suspect]
     Active Substance: VITAMINS
     Indication: VITAMIN SUPPLEMENTATION
     Dosage: 0.5 DF, BID
     Route: 048
     Dates: start: 2010
  2. LISINOPRIL. [Concomitant]
     Active Substance: LISINOPRIL
  3. FISH OIL [Concomitant]
     Active Substance: FISH OIL
  4. POTASSIUM [Concomitant]
     Active Substance: POTASSIUM
  5. VITAMIN C [Concomitant]
     Active Substance: ASCORBIC ACID
  6. ALEVE [Suspect]
     Active Substance: NAPROXEN SODIUM
     Dosage: 1 DF, BID
     Route: 048
     Dates: start: 2011, end: 2011

REACTIONS (4)
  - Expired product administered [None]
  - Product difficult to swallow [None]
  - Choking [Recovered/Resolved]
  - Product use issue [None]

NARRATIVE: CASE EVENT DATE: 2011
